FAERS Safety Report 7564450-7 (Version None)
Quarter: 2011Q2

REPORT INFORMATION
  Report Type: 
  Country: None (occurrence: None)
  Receive Date: 20110622
  Receipt Date: 20110616
  Transmission Date: 20111010
  Serious: Yes (Life-Threatening, Hospitalization)
  Sender: FDA-Public Use
  Company Number: PHHY2011IT53029

PATIENT
  Sex: Male

DRUGS (9)
  1. DEFERASIROX [Suspect]
     Indication: IRON OVERLOAD
     Dosage: 23 MG/KG, UNK
     Dates: start: 20110601, end: 20110607
  2. LOSAPREX [Concomitant]
  3. COUMADIN [Concomitant]
     Dosage: 5 MG, UNK
  4. LASIX [Concomitant]
  5. DEURSIL [Concomitant]
  6. LUVION [Concomitant]
  7. NORMIX [Concomitant]
  8. TESTOVIRON [Concomitant]
  9. PORTOLAC [Concomitant]

REACTIONS (4)
  - BILIARY COLIC [None]
  - BRADYCARDIA [None]
  - BLOOD CREATININE INCREASED [None]
  - HYPOTENSION [None]
